FAERS Safety Report 9671874 (Version 2)
Quarter: 2013Q4

REPORT INFORMATION
  Report Type: Spontaneous
  Country: JP (occurrence: JP)
  Receive Date: 20131106
  Receipt Date: 20131106
  Transmission Date: 20140711
  Serious: Yes (Death, Life-Threatening, Other)
  Sender: FDA-Public Use
  Company Number: JP-ELI_LILLY_AND_COMPANY-JP201308005878

PATIENT
  Age: 68 Year
  Sex: Female
  Weight: 47.9 kg

DRUGS (7)
  1. CYMBALTA [Suspect]
     Indication: DIABETIC NEUROPATHY
     Dosage: 20 MG, QD
     Route: 048
     Dates: start: 20130729, end: 20130731
  2. ATELEC [Concomitant]
     Indication: HYPERTENSION
     Dosage: 10 MG, QD
     Route: 048
     Dates: end: 20130731
  3. IMIDAFENACIN [Concomitant]
     Indication: BLADDER IRRITATION
     Dosage: 0.1 MG, QD
     Route: 048
     Dates: end: 20130819
  4. OLMETEC [Concomitant]
     Indication: HYPERTENSION
     Dosage: 20 MG, QD
     Route: 048
     Dates: end: 20130731
  5. KINEDAK [Concomitant]
     Indication: DIABETIC NEUROPATHY
     Dosage: 50 MG, TID
     Route: 048
     Dates: end: 20130802
  6. HUMALOG [Concomitant]
     Indication: DIABETES MELLITUS
     Dosage: UNK
     Route: 058
     Dates: start: 20130711
  7. LANTUS [Concomitant]
     Indication: DIABETES MELLITUS
     Dosage: UNK, QD
     Route: 058
     Dates: start: 20130711, end: 20130718

REACTIONS (4)
  - Sepsis [Fatal]
  - Inappropriate antidiuretic hormone secretion [Not Recovered/Not Resolved]
  - Conjunctivitis [Unknown]
  - Renal impairment [Unknown]
